FAERS Safety Report 8020646-1 (Version None)
Quarter: 2012Q1

REPORT INFORMATION
  Report Type: 
  Country: None (occurrence: None)
  Receive Date: 20120103
  Receipt Date: 20111228
  Transmission Date: 20120608
  Serious: Yes (Death, Other)
  Sender: FDA-Public Use
  Company Number: US-ASTRAZENECA-2011SE78521

PATIENT
  Age: 50 Year
  Sex: Female
  Weight: 70.3 kg

DRUGS (3)
  1. SEROQUEL XR [Suspect]
     Indication: SLEEP DISORDER
     Route: 048
  2. CELEXA [Concomitant]
  3. LITHIUM CARBONATE [Concomitant]

REACTIONS (4)
  - DEATH [None]
  - CHEST PAIN [None]
  - DRUG PRESCRIBING ERROR [None]
  - FALL [None]
